FAERS Safety Report 13630953 (Version 1)
Quarter: 2017Q2

REPORT INFORMATION
  Report Type: Spontaneous
  Country: US (occurrence: US)
  Receive Date: 20170531
  Receipt Date: 20170531
  Transmission Date: 20170830
  Serious: No
  Sender: FDA-Public Use
  Company Number: US-ASTELLAS-1341074

PATIENT
  Sex: Female
  Weight: 70.37 kg

DRUGS (11)
  1. TARCEVA [Suspect]
     Active Substance: ERLOTINIB HYDROCHLORIDE
     Indication: LUNG NEOPLASM MALIGNANT
     Route: 048
     Dates: start: 20131017, end: 20131120
  2. LIPITOR [Concomitant]
     Active Substance: ATORVASTATIN CALCIUM
  3. ISOSORBIDE MONONITRAT [Concomitant]
  4. RANEXA [Concomitant]
     Active Substance: RANOLAZINE
  5. FAMOTIDINE. [Concomitant]
     Active Substance: FAMOTIDINE
  6. INDAPAMIDE. [Concomitant]
     Active Substance: INDAPAMIDE
  7. CELEBREX [Concomitant]
     Active Substance: CELECOXIB
  8. LOMOTIL (UNITED STATES) [Concomitant]
  9. METFORMIN [Concomitant]
     Active Substance: METFORMIN HYDROCHLORIDE
     Route: 065
  10. PLAVIX [Concomitant]
     Active Substance: CLOPIDOGREL BISULFATE
  11. ACTOS [Concomitant]
     Active Substance: PIOGLITAZONE HYDROCHLORIDE

REACTIONS (1)
  - Disease progression [Unknown]
